FAERS Safety Report 20070777 (Version 1)
Quarter: 2021Q4

REPORT INFORMATION
  Report Type: Spontaneous
  Country: IN (occurrence: None)
  Receive Date: 20211115
  Receipt Date: 20211115
  Transmission Date: 20220303
  Serious: Yes (Other)
  Sender: FDA-Public Use
  Company Number: None

PATIENT
  Age: 29 Year
  Sex: Female
  Weight: 68 kg

DRUGS (1)
  1. BROMHEXINE HYDROCHLORIDE\GUAIFENESIN\MENTHOL\TERBUTALINE SULFATE [Suspect]
     Active Substance: BROMHEXINE HYDROCHLORIDE\GUAIFENESIN\MENTHOL\TERBUTALINE SULFATE
     Indication: Cough
     Dosage: OTHER QUANTITY : 1 TABLESPOON(S);?
     Route: 048
     Dates: start: 20211114, end: 20211114

REACTIONS (3)
  - Tremor [None]
  - Nausea [None]
  - Somnolence [None]

NARRATIVE: CASE EVENT DATE: 20211114
